FAERS Safety Report 10349468 (Version 1)
Quarter: 2014Q3

REPORT INFORMATION
  Report Type: Spontaneous
  Country: JP (occurrence: None)
  Receive Date: 20140728
  Receipt Date: 20140728
  Transmission Date: 20150326
  Serious: Yes (Hospitalization)
  Sender: FDA-Public Use
  Company Number: JP-20140298

PATIENT
  Age: 6 Decade
  Sex: Male

DRUGS (3)
  1. CDDP (CISPLATIN) [Concomitant]
     Active Substance: CISPLATIN
  2. LIPIODOL ULTRA FLUID [Suspect]
     Active Substance: ETHIODIZED OIL
     Indication: THERAPEUTIC EMBOLISATION
     Route: 013
     Dates: start: 20110720, end: 20110720
  3. GELATIN (GELATIN) [Concomitant]
     Active Substance: GELATIN

REACTIONS (2)
  - Off label use [None]
  - Duodenal ulcer [None]

NARRATIVE: CASE EVENT DATE: 20110721
